FAERS Safety Report 23703629 (Version 1)
Quarter: 2024Q2

REPORT INFORMATION
  Report Type: Spontaneous
  Country: US (occurrence: US)
  Receive Date: 20240403
  Receipt Date: 20240403
  Transmission Date: 20240716
  Serious: Yes (Other)
  Sender: FDA-Public Use
  Company Number: US-UPSHER-SMITH LABORATORIES, LLC-2024USL00273

PATIENT
  Sex: Female

DRUGS (3)
  1. VIGADRONE [Suspect]
     Active Substance: VIGABATRIN
     Indication: Seizure
     Dosage: UNK
     Dates: start: 20230525
  2. VIGADRONE [Suspect]
     Active Substance: VIGABATRIN
     Dosage: WEANING OFF
  3. VIGADRONE [Suspect]
     Active Substance: VIGABATRIN
     Dosage: DOSE INCREASED

REACTIONS (1)
  - Infantile spasms [Recovered/Resolved]
